FAERS Safety Report 9604440 (Version 1)
Quarter: 2013Q4

REPORT INFORMATION
  Report Type: Report from Study
  Country: AU (occurrence: AU)
  Receive Date: 20131008
  Receipt Date: 20131008
  Transmission Date: 20140711
  Serious: Yes (Other)
  Sender: FDA-Public Use
  Company Number: AU-UCBSA-099568

PATIENT
  Sex: 0

DRUGS (1)
  1. LEVETIRACETAM [Suspect]
     Dosage: DOSE: UNKNOWN
     Route: 064

REACTIONS (8)
  - Congenital great vessel anomaly [Unknown]
  - Heart disease congenital [Unknown]
  - Hypospadias [Unknown]
  - Urinary tract malformation [Unknown]
  - Limb malformation [Unknown]
  - Skull malformation [Unknown]
  - Brain malformation [Unknown]
  - Foetal exposure during pregnancy [Recovered/Resolved]
